FAERS Safety Report 17723773 (Version 1)
Quarter: 2020Q2

REPORT INFORMATION
  Report Type: Spontaneous
  Country: IN (occurrence: US)
  Receive Date: 20200429
  Receipt Date: 20200429
  Transmission Date: 20200714
  Serious: Yes (Hospitalization, Other)
  Sender: FDA-Public Use
  Company Number: US-ELI_LILLY_AND_COMPANY-US202004007436

PATIENT
  Age: 17 Year
  Sex: Female

DRUGS (2)
  1. TESTOSTERONE SOLUTION (LY900011) [Suspect]
     Active Substance: TESTOSTERONE
     Indication: HORMONE THERAPY
     Dosage: UNK, UNKNOWN
     Route: 065
  2. NORETHINDRONE ACETATE. [Concomitant]
     Active Substance: NORETHINDRONE ACETATE
     Indication: HORMONE THERAPY
     Dosage: UNK, UNKNOWN
     Route: 065

REACTIONS (2)
  - Borderline serous tumour of ovary [Unknown]
  - Adnexal torsion [Unknown]
